FAERS Safety Report 13569139 (Version 15)
Quarter: 2019Q4

REPORT INFORMATION
  Report Type: Report from Study
  Country: GR (occurrence: GR)
  Receive Date: 20170522
  Receipt Date: 20191001
  Transmission Date: 20200122
  Serious: Yes (Hospitalization, Other)
  Sender: FDA-Public Use
  Company Number: GR-SA-2017SA087974

PATIENT
  Age: 38 Year
  Sex: Female
  Weight: 60 kg

DRUGS (12)
  1. SPORANOX [Concomitant]
     Active Substance: ITRACONAZOLE
     Indication: PROPHYLAXIS
     Dosage: 100 MG,UNK
     Route: 048
     Dates: start: 20170503, end: 20170612
  2. APOTEL [Concomitant]
     Active Substance: ACETAMINOPHEN
     Indication: PROPHYLAXIS
     Dosage: 300 MG,UNK
     Route: 042
     Dates: start: 20170424, end: 20170428
  3. ALEMTUZUMAB [Suspect]
     Active Substance: ALEMTUZUMAB
     Indication: MULTIPLE SCLEROSIS RELAPSE
     Dosage: 12 MG, QD
     Route: 041
     Dates: start: 20170424, end: 20170428
  4. TEGRETOL [Concomitant]
     Active Substance: CARBAMAZEPINE
     Indication: MULTIPLE SCLEROSIS
     Dosage: 200 MG,UNK
     Route: 048
     Dates: start: 200904
  5. VALTREX [Concomitant]
     Active Substance: VALACYCLOVIR HYDROCHLORIDE
     Indication: PROPHYLAXIS
     Dosage: 1000 MG,UNK
     Route: 048
     Dates: start: 20170423, end: 20170612
  6. TEGRETOL [Concomitant]
     Active Substance: CARBAMAZEPINE
     Indication: DYSTONIA
  7. ZOFRAN [Concomitant]
     Active Substance: ONDANSETRON HYDROCHLORIDE
     Indication: PROPHYLAXIS
     Dosage: 8 MG,UNK
     Route: 042
     Dates: start: 20170424, end: 20170428
  8. ZYRTEC [Concomitant]
     Active Substance: CETIRIZINE HYDROCHLORIDE
     Indication: PROPHYLAXIS
     Dosage: 10 MG,UNK
     Route: 048
     Dates: start: 20170423, end: 20170423
  9. OMEPRAZOLE. [Concomitant]
     Active Substance: OMEPRAZOLE
     Indication: PROPHYLAXIS
     Dosage: 40 MG,UNK
     Route: 042
     Dates: start: 20170424, end: 20170428
  10. BACTRIMEL [Concomitant]
     Active Substance: SULFAMETHOXAZOLE\TRIMETHOPRIM
     Indication: PROPHYLAXIS
     Dosage: 960 MG,UNK
     Route: 048
     Dates: start: 20170506, end: 20170608
  11. SOLU-MEDROL [Concomitant]
     Active Substance: METHYLPREDNISOLONE SODIUM SUCCINATE
     Indication: PROPHYLAXIS
     Dosage: 1000 MG,UNK
     Route: 048
     Dates: start: 20170424, end: 20170428
  12. FENISTIL [Concomitant]
     Active Substance: DIMETHINDENE
     Indication: PROPHYLAXIS
     Dosage: 4 MG,UNK
     Route: 042
     Dates: start: 20170424, end: 20170428

REACTIONS (15)
  - Rash macular [Recovered/Resolved]
  - Rash macular [Recovered/Resolved]
  - Fungal skin infection [Recovered/Resolved]
  - Alanine aminotransferase increased [Recovered/Resolved]
  - Pyrexia [Recovered/Resolved]
  - Rash pruritic [Recovered/Resolved]
  - Gamma-glutamyltransferase increased [Recovered/Resolved]
  - C-reactive protein increased [Recovered/Resolved]
  - Rash macular [Recovered/Resolved]
  - Tonsillitis [Recovered/Resolved]
  - Respiratory tract infection [Recovered/Resolved]
  - Erythema multiforme [Recovered/Resolved]
  - Blood lactate dehydrogenase increased [Recovered/Resolved]
  - Thrombocytopenia [Recovered/Resolved]
  - Fatigue [Recovered/Resolved]

NARRATIVE: CASE EVENT DATE: 20170425
